FAERS Safety Report 17026736 (Version 1)
Quarter: 2019Q4

REPORT INFORMATION
  Report Type: Spontaneous
  Country: IT (occurrence: IT)
  Receive Date: 20191113
  Receipt Date: 20191113
  Transmission Date: 20200122
  Serious: Yes (Hospitalization)
  Sender: FDA-Public Use
  Company Number: IT-MYLANLABS-2019M1107633

PATIENT
  Age: 96 Year
  Sex: Female

DRUGS (5)
  1. LANOXIN [Suspect]
     Active Substance: DIGOXIN
     Indication: ATRIAL FIBRILLATION
     Dosage: 1 DOSAGE FORM, QD
     Route: 048
     Dates: start: 20180101, end: 20180714
  2. LEVOTHYROXINE. [Concomitant]
     Active Substance: LEVOTHYROXINE
  3. ELIQUIS [Concomitant]
     Active Substance: APIXABAN
  4. BISOPROLOL [Suspect]
     Active Substance: BISOPROLOL
     Indication: ATRIAL FIBRILLATION
     Dosage: 3750 MICROGRAM, QD
     Route: 048
     Dates: start: 20180101, end: 20180714
  5. LASIX [Concomitant]
     Active Substance: FUROSEMIDE
     Dosage: 50 MILLIGRAM
     Route: 048

REACTIONS (3)
  - Renal failure [Unknown]
  - Toxicity to various agents [Unknown]
  - Bradycardia [Unknown]

NARRATIVE: CASE EVENT DATE: 20180714
